FAERS Safety Report 4533374-1 (Version None)
Quarter: 2004Q4

REPORT INFORMATION
  Report Type: 
  Country: None (occurrence: None)
  Receive Date: 20041210
  Receipt Date: 20040823
  Transmission Date: 20050328
  Serious: No
  Sender: FDA-Public Use
  Company Number: A03200402953

PATIENT
  Age: 67 Year
  Sex: Female
  Weight: 48.9885 kg

DRUGS (3)
  1. ELOXATIN [Suspect]
     Indication: RECTAL CANCER METASTATIC
     Dosage: 125 MG Q2W - INTRAVENOUS NOS
     Route: 042
     Dates: start: 20040727, end: 20040727
  2. FLUOROURACIL [Concomitant]
  3. LEUCOVORIN [Concomitant]

REACTIONS (3)
  - HYPOAESTHESIA [None]
  - MUSCLE CRAMP [None]
  - THROAT TIGHTNESS [None]
